FAERS Safety Report 15714404 (Version 7)
Quarter: 2019Q2

REPORT INFORMATION
  Report Type: Spontaneous
  Country: US (occurrence: US)
  Receive Date: 20181212
  Receipt Date: 20190619
  Transmission Date: 20190711
  Serious: No
  Sender: FDA-Public Use
  Company Number: US-SA-2018SA337784

PATIENT
  Age: 58 Year
  Sex: Female

DRUGS (2)
  1. KEVZARA [Suspect]
     Active Substance: SARILUMAB
     Dosage: 200 MG, QOW
     Route: 058
  2. KEVZARA [Suspect]
     Active Substance: SARILUMAB
     Indication: RHEUMATOID ARTHRITIS
     Dosage: 200 MG, QOW
     Route: 058
     Dates: start: 201809, end: 201901

REACTIONS (7)
  - Chronic obstructive pulmonary disease [Unknown]
  - Condition aggravated [Unknown]
  - Rash generalised [Unknown]
  - Pruritus [Unknown]
  - Asthma [Unknown]
  - Sinusitis [Unknown]
  - Pain in extremity [Unknown]
